FAERS Safety Report 8880478 (Version 1)
Quarter: 2012Q4

REPORT INFORMATION
  Report Type: 
  Country: JP (occurrence: JP)
  Receive Date: 20121101
  Receipt Date: 20121101
  Transmission Date: 20130627
  Serious: Yes (Hospitalization)
  Sender: FDA-Public Use
  Company Number: JP-SANOFI-AVENTIS-200911622JP

PATIENT
  Age: 40 Year
  Sex: Female
  Weight: 48 kg

DRUGS (5)
  1. ALLEGRA [Suspect]
     Indication: FOOD ALLERGY
     Dosage: Dose unit: 60 MG
     Route: 048
     Dates: start: 20090501, end: 20090522
  2. CELESTAMINE [Suspect]
     Indication: DRUG USE FOR UNKNOWN INDICATION
     Route: 065
     Dates: end: 20090522
  3. SUPLATAST TOSILATE [Suspect]
     Indication: DRUG USE FOR UNKNOWN INDICATION
     Route: 065
     Dates: end: 20090522
  4. CELESTAMINE [Concomitant]
  5. IPD [Concomitant]

REACTIONS (2)
  - Hepatitis acute [Recovering/Resolving]
  - Chromaturia [Recovering/Resolving]
